FAERS Safety Report 24417085 (Version 1)
Quarter: 2024Q4

REPORT INFORMATION
  Report Type: Report from Study
  Country: US (occurrence: US)
  Receive Date: 20241009
  Receipt Date: 20241009
  Transmission Date: 20250115
  Serious: Yes (Hospitalization)
  Sender: GILEAD
  Company Number: US-GILEAD-2024-0690368

PATIENT
  Age: 35 Year
  Sex: Female

DRUGS (1)
  1. AZTREONAM LYSINE [Suspect]
     Active Substance: AZTREONAM LYSINE
     Indication: Cystic fibrosis
     Dosage: INHALE 1 VIAL VIA NEBULIZER 3 TIMES DAILY FOR 28 DAYS THEN 28 DAYS OFF
     Route: 055

REACTIONS (2)
  - Ill-defined disorder [Unknown]
  - Loss of personal independence in daily activities [Unknown]
